FAERS Safety Report 13694511 (Version 2)
Quarter: 2018Q1

REPORT INFORMATION
  Report Type: Report from Study
  Country: None (occurrence: US)
  Receive Date: 20170627
  Receipt Date: 20180323
  Transmission Date: 20180508
  Serious: Yes (Death, Hospitalization)
  Sender: FDA-Public Use
  Company Number: US-ABBVIE-17K-163-1916095-00

PATIENT
  Age: 73 Year
  Sex: Male
  Weight: 127.12 kg

DRUGS (2)
  1. HUMIRA [Suspect]
     Active Substance: ADALIMUMAB
     Indication: RHEUMATOID ARTHRITIS
     Route: 058
     Dates: start: 2010
  2. HUMIRA [Suspect]
     Active Substance: ADALIMUMAB
     Route: 058

REACTIONS (4)
  - Cardiac failure congestive [Recovered/Resolved]
  - Cardiomyopathy [Recovered/Resolved]
  - Cardiac failure congestive [Fatal]
  - Renal failure [Fatal]

NARRATIVE: CASE EVENT DATE: 201605
